FAERS Safety Report 14701507 (Version 1)
Quarter: 2018Q1

REPORT INFORMATION
  Report Type: Spontaneous
  Country: US (occurrence: US)
  Receive Date: 20180330
  Receipt Date: 20180330
  Transmission Date: 20180509
  Serious: No
  Sender: FDA-Public Use
  Company Number: US-ASTRAZENECA-2017SE71923

PATIENT
  Sex: Male
  Weight: 84.4 kg

DRUGS (5)
  1. BYDUREON [Suspect]
     Active Substance: EXENATIDE
     Indication: OVERWEIGHT
     Route: 058
  2. BYDUREON [Suspect]
     Active Substance: EXENATIDE
     Indication: BLOOD TRIGLYCERIDES ABNORMAL
     Route: 058
  3. BYDUREON [Suspect]
     Active Substance: EXENATIDE
     Indication: BLOOD CHOLESTEROL ABNORMAL
     Route: 058
  4. BYDUREON [Suspect]
     Active Substance: EXENATIDE
     Indication: TYPE 2 DIABETES MELLITUS
     Route: 058
  5. BYDUREON [Suspect]
     Active Substance: EXENATIDE
     Indication: GLYCOSYLATED HAEMOGLOBIN
     Route: 058

REACTIONS (8)
  - Device issue [Unknown]
  - Intentional product misuse [Recovered/Resolved]
  - Device leakage [Unknown]
  - Body height decreased [Unknown]
  - Weight decreased [Unknown]
  - Injection site mass [Unknown]
  - Off label use [Unknown]
  - Product use in unapproved indication [Unknown]
